FAERS Safety Report 13551743 (Version 1)
Quarter: 2017Q2

REPORT INFORMATION
  Report Type: Spontaneous
  Country: HR (occurrence: HR)
  Receive Date: 20170516
  Receipt Date: 20170516
  Transmission Date: 20170830
  Serious: Yes (Other)
  Sender: FDA-Public Use
  Company Number: HR-PFIZER INC-2017211824

PATIENT
  Age: 17 Year
  Sex: Male

DRUGS (3)
  1. PREGABALIN. [Suspect]
     Active Substance: PREGABALIN
     Dosage: 42 TABLETS, UNK
     Route: 048
  2. MIRTAZAPIN [Suspect]
     Active Substance: MIRTAZAPINE
     Dosage: 25 TABLETS, UNK
     Route: 048
  3. SANVAL [Suspect]
     Active Substance: ZOLPIDEM TARTRATE
     Dosage: 10 TABLETS, UNK
     Route: 048

REACTIONS (5)
  - Product use issue [Unknown]
  - Intentional overdose [Unknown]
  - Disorientation [Unknown]
  - Somnolence [Unknown]
  - Suicide attempt [Unknown]

NARRATIVE: CASE EVENT DATE: 20170308
